FAERS Safety Report 8392068-5 (Version None)
Quarter: 2012Q2

REPORT INFORMATION
  Report Type: 
  Country: None (occurrence: None)
  Receive Date: 20120529
  Receipt Date: 20120521
  Transmission Date: 20120825
  Serious: Yes (Hospitalization, Other)
  Sender: FDA-Public Use
  Company Number: US-ASTRAZENECA-2010SE52351

PATIENT
  Age: 71 Year
  Sex: Male

DRUGS (1)
  1. PULMICORT FLEXHALER [Suspect]
     Dosage: 2 PUFFS
     Route: 055

REACTIONS (6)
  - LUNG DISORDER [None]
  - BLOOD DISORDER [None]
  - DYSPNOEA [None]
  - DYSPEPSIA [None]
  - MALAISE [None]
  - PNEUMOTHORAX [None]
